FAERS Safety Report 5762265-3 (Version None)
Quarter: 2008Q2

REPORT INFORMATION
  Report Type: 
  Country: None (occurrence: None)
  Receive Date: 20080609
  Receipt Date: 20080603
  Transmission Date: 20081010
  Serious: Yes (Disabling)
  Sender: FDA-Public Use
  Company Number: US-ELI_LILLY_AND_COMPANY-US200805005880

PATIENT
  Sex: Female
  Weight: 74.83 kg

DRUGS (6)
  1. ZYPREXA [Suspect]
     Indication: LOGORRHOEA
     Dosage: 2.5 MG, EACH EVENING
  2. ZYPREXA [Suspect]
     Dosage: 5 MG, DAILY (1/D)
     Dates: start: 20080401
  3. ZYPREXA [Suspect]
     Dosage: 5 MG, 2/D
     Dates: start: 20080101, end: 20080601
  4. ZYPREXA [Suspect]
     Dosage: 7.5 MG, UNK
     Dates: start: 20080602
  5. ARICEPT [Concomitant]
  6. BUSPAR [Concomitant]

REACTIONS (13)
  - ABNORMAL DREAMS [None]
  - ANOREXIA [None]
  - COUGH [None]
  - DEMENTIA [None]
  - DEPRESSED MOOD [None]
  - DYSARTHRIA [None]
  - HAEMORRHOIDS [None]
  - HYPOKINESIA [None]
  - PAIN [None]
  - SCREAMING [None]
  - SNORING [None]
  - SOMNOLENCE [None]
  - WHEELCHAIR USER [None]
